FAERS Safety Report 17030826 (Version 2)
Quarter: 2020Q1

REPORT INFORMATION
  Report Type: Spontaneous
  Country: GB (occurrence: GB)
  Receive Date: 20191114
  Receipt Date: 20200228
  Transmission Date: 20200409
  Serious: Yes (Other)
  Sender: FDA-Public Use
  Company Number: NVSC2019GB033704

PATIENT
  Age: 39 Year
  Sex: Female

DRUGS (2)
  1. TRAMETINIB [Suspect]
     Active Substance: TRAMETINIB
     Indication: ADJUVANT THERAPY
     Dosage: 2 MG, QD
     Route: 048
     Dates: start: 20190329
  2. DABRAFENIB [Suspect]
     Active Substance: DABRAFENIB
     Indication: ADJUVANT THERAPY
     Dosage: 150 MG, BID
     Route: 065
     Dates: start: 20190329

REACTIONS (3)
  - Cardiac discomfort [Recovered/Resolved]
  - Ejection fraction decreased [Unknown]
  - Alopecia [Recovering/Resolving]

NARRATIVE: CASE EVENT DATE: 20190718
